FAERS Safety Report 12790450 (Version 1)
Quarter: 2016Q3

REPORT INFORMATION
  Report Type: Spontaneous
  Country: US (occurrence: US)
  Receive Date: 20160929
  Receipt Date: 20160929
  Transmission Date: 20161109
  Serious: No
  Sender: FDA-Public Use
  Company Number: US-AUROBINDO-AUR-APU-2016-03396

PATIENT
  Sex: Female

DRUGS (1)
  1. CARISOPRODOL TABLETS USP 350 MG [Suspect]
     Active Substance: CARISOPRODOL
     Indication: MUSCLE SPASMS
     Dosage: 350 MG, FOUR TIMES/DAY, ONE TABLET EVERY 6 HOURS
     Route: 065
     Dates: start: 20160302, end: 20160303

REACTIONS (1)
  - Drug ineffective [Not Recovered/Not Resolved]

NARRATIVE: CASE EVENT DATE: 20160302
